FAERS Safety Report 7765367-5 (Version None)
Quarter: 2011Q3

REPORT INFORMATION
  Report Type: 
  Country: None (occurrence: None)
  Receive Date: 20110921
  Receipt Date: 20110913
  Transmission Date: 20111222
  Serious: Yes (Other)
  Sender: FDA-Public Use
  Company Number: US-AMGEN-USASP2011047047

PATIENT
  Age: 59 Year
  Sex: Female

DRUGS (1)
  1. ENBREL [Suspect]
     Indication: RHEUMATOID ARTHRITIS
     Dosage: 50 MG, QWK
     Dates: start: 20110703

REACTIONS (9)
  - HEADACHE [None]
  - INJECTION SITE SWELLING [None]
  - EMOTIONAL DISORDER [None]
  - ARTHRALGIA [None]
  - SINUSITIS [None]
  - BLOOD GLUCOSE INCREASED [None]
  - PAIN IN EXTREMITY [None]
  - INJECTION SITE WARMTH [None]
  - FATIGUE [None]
